FAERS Safety Report 6339846-1 (Version None)
Quarter: 2009Q3

REPORT INFORMATION
  Report Type: 
  Country: None (occurrence: None)
  Receive Date: 20090903
  Receipt Date: 20090826
  Transmission Date: 20100115
  Serious: Yes (Hospitalization)
  Sender: FDA-Public Use
  Company Number: JP-ASTRAZENECA-2009SE10022

PATIENT
  Age: 38 Year
  Sex: Male

DRUGS (4)
  1. SEROQUEL [Suspect]
     Route: 048
  2. MYSLEE [Suspect]
     Route: 048
  3. DEPROMEL [Suspect]
     Route: 048
  4. ANTIPSYCHOTICS [Concomitant]

REACTIONS (1)
  - PANCYTOPENIA [None]
